FAERS Safety Report 4823220-0 (Version None)
Quarter: 2005Q4

REPORT INFORMATION
  Report Type: 
  Country: None (occurrence: None)
  Receive Date: 20051108
  Receipt Date: 20051108
  Transmission Date: 20060501
  Serious: Yes (Hospitalization)
  Sender: FDA-Public Use
  Company Number: None

PATIENT
  Age: 23 Year
  Sex: Female
  Weight: 63.9572 kg

DRUGS (12)
  1. GEODON [Suspect]
     Indication: BIPOLAR DISORDER
     Dosage: ORAL
     Route: 048
     Dates: start: 20050524, end: 20050624
  2. GEODON [Suspect]
     Indication: MOOD ALTERED
     Dosage: ORAL
     Route: 048
     Dates: start: 20050524, end: 20050624
  3. COGENTIN [Concomitant]
  4. LAMICTAL [Concomitant]
  5. LITHIUM [Concomitant]
  6. BUSPOR [Concomitant]
  7. XANAX [Concomitant]
  8. DEMEROL [Concomitant]
  9. BACLOFEN [Concomitant]
  10. ATIVAN [Concomitant]
  11. TYLENOL ES [Concomitant]
  12. PHENERGAN [Concomitant]

REACTIONS (4)
  - ASTHENIA [None]
  - MUSCLE RIGIDITY [None]
  - NEUROLEPTIC MALIGNANT SYNDROME [None]
  - RHABDOMYOLYSIS [None]
